FAERS Safety Report 12786667 (Version 7)
Quarter: 2017Q4

REPORT INFORMATION
  Report Type: Report from Study
  Country: None (occurrence: FI)
  Receive Date: 20160927
  Receipt Date: 20171016
  Transmission Date: 20180320
  Serious: Yes (Hospitalization, Other)
  Sender: FDA-Public Use
  Company Number: FI-ABBVIE-16P-055-1734038-00

PATIENT
  Age: 60 Year
  Sex: Male
  Weight: 83 kg

DRUGS (20)
  1. VENETOCLAX. [Suspect]
     Active Substance: VENETOCLAX
     Route: 048
     Dates: start: 2016, end: 2016
  2. RASBURICASE [Concomitant]
     Active Substance: RASBURICASE
     Indication: PROPHYLAXIS
  3. VENETOCLAX. [Suspect]
     Active Substance: VENETOCLAX
     Route: 048
     Dates: start: 201609, end: 2016
  4. VENETOCLAX. [Suspect]
     Active Substance: VENETOCLAX
     Route: 048
     Dates: start: 2016
  5. VENETOCLAX. [Suspect]
     Active Substance: VENETOCLAX
     Dosage: 100MG A DAY AND 200MG A DAY ON ALTERNATING DAYS
     Route: 048
     Dates: start: 201705
  6. VENETOCLAX. [Suspect]
     Active Substance: VENETOCLAX
     Indication: CHRONIC LYMPHOCYTIC LEUKAEMIA
     Route: 048
     Dates: start: 20160809, end: 20161130
  7. VENETOCLAX. [Suspect]
     Active Substance: VENETOCLAX
     Route: 048
     Dates: start: 201609, end: 201609
  8. VENETOCLAX. [Suspect]
     Active Substance: VENETOCLAX
     Route: 048
     Dates: start: 2017, end: 2017
  9. VENETOCLAX. [Suspect]
     Active Substance: VENETOCLAX
     Route: 048
     Dates: start: 2017, end: 2017
  10. ENALAPRIL [Concomitant]
     Active Substance: ENALAPRIL
     Indication: HYPERTENSION
  11. RASBURICASE [Concomitant]
     Active Substance: RASBURICASE
     Indication: TUMOUR LYSIS SYNDROME
  12. CEFTRIAXON-MICAFUNGIN [Concomitant]
     Indication: COLONY STIMULATING FACTOR THERAPY
     Dates: start: 20160906
  13. RASBURICASE [Concomitant]
     Active Substance: RASBURICASE
     Indication: PROPHYLAXIS
  14. VENETOCLAX. [Suspect]
     Active Substance: VENETOCLAX
     Dosage: 100MG A DAY AND 200MG A DAY ON ALTERNATING DAYS
     Route: 048
     Dates: start: 201705
  15. ATENOLOL. [Concomitant]
     Active Substance: ATENOLOL
     Indication: HYPERTENSION
  16. VENETOCLAX. [Suspect]
     Active Substance: VENETOCLAX
     Route: 048
     Dates: start: 201608, end: 201608
  17. VENETOCLAX. [Suspect]
     Active Substance: VENETOCLAX
     Route: 048
     Dates: end: 2017
  18. VENETOCLAX. [Suspect]
     Active Substance: VENETOCLAX
     Route: 048
     Dates: start: 20170329, end: 2017
  19. ALLOPURINOL. [Concomitant]
     Active Substance: ALLOPURINOL
     Indication: PRODUCT USED FOR UNKNOWN INDICATION
     Dates: start: 201608
  20. RASBURICASE [Concomitant]
     Active Substance: RASBURICASE
     Indication: TUMOUR LYSIS SYNDROME
     Dates: start: 2016, end: 2016

REACTIONS (13)
  - Haemolysis [Recovering/Resolving]
  - Febrile neutropenia [Unknown]
  - Hyperkalaemia [Unknown]
  - Autoimmune haemolytic anaemia [Recovering/Resolving]
  - Staphylococcal infection [Unknown]
  - Chronic lymphocytic leukaemia [Unknown]
  - Sepsis [Unknown]
  - Pyrexia [Unknown]
  - Laboratory test abnormal [Unknown]
  - Lymphocytosis [Unknown]
  - Splenomegaly [Unknown]
  - Neutropenia [Unknown]
  - Haemolysis [Not Recovered/Not Resolved]

NARRATIVE: CASE EVENT DATE: 2016
